FAERS Safety Report 5278547-8 (Version None)
Quarter: 2007Q1

REPORT INFORMATION
  Report Type: 
  Country: None (occurrence: None)
  Receive Date: 20070328
  Receipt Date: 20070322
  Transmission Date: 20070707
  Serious: Yes (Hospitalization)
  Sender: FDA-Public Use
  Company Number: AU-ALLERGAN-0702987US

PATIENT
  Age: 15 Year
  Sex: Male

DRUGS (1)
  1. BOTOX [Suspect]
     Indication: CEREBRAL PALSY
     Dosage: 200 UNITS, UNK
     Route: 030

REACTIONS (1)
  - PERICARDITIS [None]
